FAERS Safety Report 25845238 (Version 2)
Quarter: 2025Q4

REPORT INFORMATION
  Report Type: Spontaneous
  Country: GB (occurrence: GB)
  Receive Date: 20250925
  Receipt Date: 20251009
  Transmission Date: 20260118
  Serious: No
  Sender: ALK-ABELLO
  Company Number: GB-ALK-ABELLO A/S-2025AA003247

PATIENT

DRUGS (1)
  1. ACARIZAX [Suspect]
     Active Substance: DERMATOPHAGOIDES FARINAE\DERMATOPHAGOIDES PTERONYSSINUS
     Indication: Mite allergy
     Dosage: UNK
     Dates: start: 20250725, end: 20250806

REACTIONS (5)
  - Oropharyngeal blistering [Unknown]
  - Sneezing [Unknown]
  - Dyspnoea [Unknown]
  - Nasal congestion [Unknown]
  - Facial pain [Unknown]

NARRATIVE: CASE EVENT DATE: 20250805
